FAERS Safety Report 9169833 (Version 1)
Quarter: 2013Q1

REPORT INFORMATION
  Report Type: Spontaneous
  Country: CH (occurrence: CH)
  Receive Date: 20130319
  Receipt Date: 20130319
  Transmission Date: 20140127
  Serious: Yes (Other)
  Sender: FDA-Public Use
  Company Number: PHHY2013CH025447

PATIENT
  Sex: 0

DRUGS (3)
  1. METOPROLOL [Suspect]
     Dosage: UNK UKN, UNK
     Route: 064
  2. PRAVASTATIN [Suspect]
     Dosage: UNK UKN, UNK
     Route: 064
  3. ASPIRIN [Concomitant]
     Dosage: UNK UKN, UNK
     Route: 064

REACTIONS (2)
  - Inguinal hernia [Unknown]
  - Foetal exposure during pregnancy [Unknown]
